FAERS Safety Report 10087145 (Version 1)
Quarter: 2014Q2

REPORT INFORMATION
  Report Type: Not Available
  Country: FR (occurrence: FR)
  Receive Date: 20140418
  Receipt Date: 20140418
  Transmission Date: 20141212
  Serious: Yes (Life-Threatening, Other)
  Sender: FDA-Public Use
  Company Number: FR-NAPPMUNDI-GBR-2014-0017948

PATIENT
  Age: 88 Year
  Sex: Male

DRUGS (11)
  1. OXYNORM 10 MG, GELULE [Suspect]
     Indication: BACK PAIN
     Dosage: 20 MG, DAILY
     Route: 048
     Dates: end: 201307
  2. OXYNORM 10 MG, GELULE [Suspect]
     Dosage: 1 TABLET, PRN
     Route: 048
  3. PREVISCAN                          /00261401/ [Concomitant]
     Route: 048
  4. TRANSIPEG                          /00754501/ [Concomitant]
     Route: 048
  5. INEXIUM                            /01479302/ [Concomitant]
     Dosage: 40 MG, DAILY
     Route: 048
  6. LANTUS [Concomitant]
     Dosage: 32 UNIT, DAILY
     Route: 058
  7. LYRICA [Concomitant]
     Dosage: 125 MG, DAILY
     Route: 048
  8. HEMIGOXINE NATIVELLE [Concomitant]
     Dosage: UNK DF, QID
     Route: 048
  9. DIFFU K [Concomitant]
     Dosage: 1 DF, BID
     Route: 048
  10. MONO-TILDIEM [Concomitant]
     Dosage: 300 MG, DAILY
     Route: 048
  11. KARDEGIC [Concomitant]
     Dosage: 75 MG, DAILY
     Route: 048

REACTIONS (4)
  - Hypercapnia [Recovered/Resolved]
  - Acute respiratory failure [Recovered/Resolved]
  - Dyspnoea [Recovered/Resolved]
  - Oedema peripheral [Recovered/Resolved]
